FAERS Safety Report 18141694 (Version 16)
Quarter: 2021Q3

REPORT INFORMATION
  Report Type: Spontaneous
  Country: CA (occurrence: CA)
  Receive Date: 20200812
  Receipt Date: 20210804
  Transmission Date: 20211014
  Serious: Yes (Other)
  Sender: FDA-Public Use
  Company Number: CA-PFIZER INC-2020206556

PATIENT
  Age: 56 Year
  Sex: Male
  Weight: 141 kg

DRUGS (20)
  1. ZIRABEV [Suspect]
     Active Substance: BEVACIZUMAB-BVZR
     Dosage: 7.5 MG/KG (1000 MG), EVERY 3 WEEKS
     Route: 042
     Dates: start: 20200610
  2. ZIRABEV [Suspect]
     Active Substance: BEVACIZUMAB-BVZR
     Dosage: 1000 MG EVERY 3 WEEKS
     Route: 042
     Dates: start: 20201014
  3. ZIRABEV [Suspect]
     Active Substance: BEVACIZUMAB-BVZR
     Dosage: 7.5 MG/KG (1000 MG), EVERY 3 WEEKS
     Route: 042
     Dates: start: 20200702
  4. ZIRABEV [Suspect]
     Active Substance: BEVACIZUMAB-BVZR
     Dosage: 7.5 MG/KG (1000 MG), EVERY 3 WEEKS
     Route: 042
     Dates: start: 20200723
  5. ZIRABEV [Suspect]
     Active Substance: BEVACIZUMAB-BVZR
     Dosage: 7.5 MG/KG 1000 MG, EVERY 3 WEEKS
     Route: 042
     Dates: start: 20200723
  6. ZIRABEV [Suspect]
     Active Substance: BEVACIZUMAB-BVZR
     Dosage: 1000 MG, EVERY 3 WEEKS
     Route: 042
     Dates: start: 20200902, end: 20200902
  7. ZIRABEV [Suspect]
     Active Substance: BEVACIZUMAB-BVZR
     Dosage: 1000 MG EVERY 3 WEEKS
     Route: 042
     Dates: start: 20201014
  8. ZIRABEV [Suspect]
     Active Substance: BEVACIZUMAB-BVZR
     Dosage: 1000MG EVERY 3 WEEKS
     Dates: start: 20210330
  9. ZIRABEV [Suspect]
     Active Substance: BEVACIZUMAB-BVZR
     Dosage: 7.5 MG/KG (1000 MG), EVERY 3 WEEKS
     Route: 042
     Dates: start: 20200702
  10. ZIRABEV [Suspect]
     Active Substance: BEVACIZUMAB-BVZR
     Dosage: 1000 MG, EVERY 3 WEEKS
     Route: 042
     Dates: start: 20200923
  11. ZIRABEV [Suspect]
     Active Substance: BEVACIZUMAB-BVZR
     Dosage: 1000MG EVERY 3 WEEKS
     Dates: start: 20210519
  12. ZIRABEV [Suspect]
     Active Substance: BEVACIZUMAB-BVZR
     Dosage: 7.5 MG/KG 1000 MG, EVERY 3 WEEKS
     Route: 042
     Dates: start: 20200813
  13. ZIRABEV [Suspect]
     Active Substance: BEVACIZUMAB-BVZR
     Dosage: 420 MG ON DAY 1 AND 15
     Route: 042
     Dates: start: 20210105
  14. ZIRABEV [Suspect]
     Active Substance: BEVACIZUMAB-BVZR
     Dosage: 1000MG EVERY 3 WEEKS
     Dates: start: 20210421
  15. ZIRABEV [Suspect]
     Active Substance: BEVACIZUMAB-BVZR
     Dosage: 1000 MG, EVERY 3 WEEKS
     Route: 042
     Dates: start: 20200923
  16. ZIRABEV [Suspect]
     Active Substance: BEVACIZUMAB-BVZR
     Dosage: 1000MG EVERY 3 WEEKS
     Route: 042
     Dates: start: 20210628, end: 20210628
  17. TAGRISSO [Concomitant]
     Active Substance: OSIMERTINIB
     Dosage: UNK
  18. ZIRABEV [Suspect]
     Active Substance: BEVACIZUMAB-BVZR
     Indication: GLIOBLASTOMA
     Dosage: 7.5 MG/KG (1000 MG), EVERY 3 WEEKS
     Route: 042
     Dates: start: 20200610
  19. ZIRABEV [Suspect]
     Active Substance: BEVACIZUMAB-BVZR
     Dosage: 420 MG ON DAY 1 AND 15
     Route: 042
     Dates: start: 20210105
  20. ZIRABEV [Suspect]
     Active Substance: BEVACIZUMAB-BVZR
     Dosage: 1000 MG, EVERY 3 WEEKS
     Route: 042
     Dates: start: 20200902, end: 20200902

REACTIONS (14)
  - Blood pressure increased [Not Recovered/Not Resolved]
  - Inappropriate schedule of product administration [Unknown]
  - Haematocrit decreased [Unknown]
  - Weight decreased [Unknown]
  - Red cell distribution width increased [Not Recovered/Not Resolved]
  - Blood pressure fluctuation [Not Recovered/Not Resolved]
  - Off label use [Unknown]
  - Product use issue [Unknown]
  - Platelet count decreased [Recovering/Resolving]
  - Brain oedema [Unknown]
  - Blood creatinine increased [Not Recovered/Not Resolved]
  - Urine abnormality [Unknown]
  - Red blood cells urine positive [Unknown]
  - Urine leukocyte esterase positive [Unknown]

NARRATIVE: CASE EVENT DATE: 20200610
